FAERS Safety Report 4992771-0 (Version None)
Quarter: 2006Q2

REPORT INFORMATION
  Report Type: 
  Country: None (occurrence: None)
  Receive Date: 20060504
  Receipt Date: 20060427
  Transmission Date: 20061013
  Serious: Yes (Other)
  Sender: FDA-Public Use
  Company Number: HU-ABBOTT-06P-076-0332090-00

PATIENT
  Age: 49 Year
  Sex: Female

DRUGS (1)
  1. CYCLOSPORINE [Suspect]
     Indication: IMMUNOSUPPRESSION
     Dates: start: 20010101

REACTIONS (1)
  - MALIGNANT NEOPLASM OF RENAL PELVIS [None]
